FAERS Safety Report 16478233 (Version 1)
Quarter: 2019Q2

REPORT INFORMATION
  Report Type: Spontaneous
  Country: US (occurrence: US)
  Receive Date: 20190626
  Receipt Date: 20190626
  Transmission Date: 20190711
  Serious: No
  Sender: FDA-Public Use
  Company Number: US-TEVA-2019-US-1060320

PATIENT

DRUGS (1)
  1. TADAFIL [Suspect]
     Active Substance: TADALAFIL
     Route: 065

REACTIONS (4)
  - Back pain [Unknown]
  - Neck pain [Unknown]
  - Drug intolerance [Unknown]
  - Headache [Unknown]
